FAERS Safety Report 6919668-0 (Version None)
Quarter: 2010Q3

REPORT INFORMATION
  Report Type: 
  Country: None (occurrence: None)
  Receive Date: 20100811
  Receipt Date: 20100803
  Transmission Date: 20110219
  Serious: Yes (Other)
  Sender: FDA-Public Use
  Company Number: US-ABBOTT-08P-163-0434008-00

PATIENT
  Sex: Male

DRUGS (2)
  1. VICODIN [Suspect]
     Indication: BACK PAIN
     Dates: start: 19950101, end: 20090101
  2. VICODIN [Suspect]
     Indication: THROAT CANCER

REACTIONS (6)
  - CONSTIPATION [None]
  - DRUG INEFFECTIVE [None]
  - FALL [None]
  - HUMERUS FRACTURE [None]
  - PAIN [None]
  - THROAT CANCER [None]
